FAERS Safety Report 19422013 (Version 1)
Quarter: 2021Q2

REPORT INFORMATION
  Report Type: Spontaneous
  Country: US (occurrence: US)
  Receive Date: 20210615
  Receipt Date: 20210615
  Transmission Date: 20210717
  Serious: Yes (Hospitalization)
  Sender: FDA-Public Use
  Company Number: None

PATIENT
  Sex: Male

DRUGS (16)
  1. CYCLOBENZAPR [Concomitant]
     Active Substance: CYCLOBENZAPRINE
  2. METOPROL TAR [Concomitant]
  3. CLOBETASOL OIN [Concomitant]
  4. PREDNISONE. [Concomitant]
     Active Substance: PREDNISONE
  5. IPRATROPIUM SPR [Concomitant]
  6. ESBRIET [Suspect]
     Active Substance: PIRFENIDONE
     Indication: IDIOPATHIC PULMONARY FIBROSIS
     Route: 048
     Dates: start: 20200131
  7. METFORMIN [Concomitant]
     Active Substance: METFORMIN HYDROCHLORIDE
  8. MULTAQ [Concomitant]
     Active Substance: DRONEDARONE
  9. TORSEMIDE. [Concomitant]
     Active Substance: TORSEMIDE
  10. CARVEDILOL. [Concomitant]
     Active Substance: CARVEDILOL
  11. AMLODIPINE [Concomitant]
     Active Substance: AMLODIPINE BESYLATE
  12. AZATHIOPRINE. [Concomitant]
     Active Substance: AZATHIOPRINE
  13. EZETIMBE [Concomitant]
     Active Substance: EZETIMIBE
  14. ELIQUIS [Concomitant]
     Active Substance: APIXABAN
  15. ATORVASTATIN [Concomitant]
     Active Substance: ATORVASTATIN
  16. POT CHLORIDE ER [Concomitant]

REACTIONS (1)
  - Atrial fibrillation [None]
